FAERS Safety Report 5923560-8 (Version None)
Quarter: 2008Q4

REPORT INFORMATION
  Report Type: 
  Country: None (occurrence: None)
  Receive Date: 20081020
  Receipt Date: 20081010
  Transmission Date: 20090506
  Serious: Yes (Hospitalization)
  Sender: FDA-Public Use
  Company Number: FR-AMGEN-UK275811

PATIENT
  Sex: Male

DRUGS (12)
  1. PANITUMUMAB [Suspect]
     Indication: SQUAMOUS CELL CARCINOMA
     Route: 042
     Dates: start: 20080414
  2. FLUOROURACIL [Suspect]
     Dates: start: 20080414, end: 20080418
  3. CISPLATIN [Concomitant]
     Dates: start: 20080414, end: 20080414
  4. CEFTRIAXONE [Concomitant]
  5. TRIMEBUTINE [Concomitant]
  6. SPASFON [Concomitant]
  7. DEROXAT [Concomitant]
  8. SMECTA [Concomitant]
  9. DIFFU K [Concomitant]
  10. OXYCONTIN [Concomitant]
  11. IMOVANE [Concomitant]
  12. LYRICA [Concomitant]

REACTIONS (3)
  - COLITIS ULCERATIVE [None]
  - DIARRHOEA [None]
  - NECROTISING COLITIS [None]
